FAERS Safety Report 22304485 (Version 1)
Quarter: 2023Q2

REPORT INFORMATION
  Report Type: Spontaneous
  Country: US (occurrence: None)
  Receive Date: 20230509
  Receipt Date: 20230509
  Transmission Date: 20230722
  Serious: Yes (Other)
  Sender: FDA-Public Use
  Company Number: None

PATIENT
  Age: 50 Year
  Sex: Female
  Weight: 65.25 kg

DRUGS (3)
  1. OFLOXACIN OPHTHALMIC [Suspect]
     Active Substance: OFLOXACIN
     Indication: Conjunctivitis
     Dosage: OTHER QUANTITY : 30 DROP(S);?FREQUENCY : EVERY 6 HOURS;?
     Route: 047
     Dates: start: 20221001, end: 20221010
  2. UNSPECIFIED INGREDIENT [Concomitant]
     Active Substance: UNSPECIFIED INGREDIENT
  3. proboitic [Concomitant]

REACTIONS (2)
  - Conjunctivitis [None]
  - Recalled product administered [None]

NARRATIVE: CASE EVENT DATE: 20221001
